FAERS Safety Report 13029967 (Version 1)
Quarter: 2016Q4

REPORT INFORMATION
  Report Type: Report from Study
  Country: US (occurrence: US)
  Receive Date: 20161215
  Receipt Date: 20161215
  Transmission Date: 20170207
  Serious: Yes (Hospitalization)
  Sender: FDA-Public Use
  Company Number: US-JNJFOC-20161212259

PATIENT
  Sex: Female

DRUGS (1)
  1. IMBRUVICA [Suspect]
     Active Substance: IBRUTINIB
     Indication: CHRONIC LYMPHOCYTIC LEUKAEMIA
     Route: 048
     Dates: start: 20160203

REACTIONS (5)
  - Balance disorder [Unknown]
  - Ear disorder [Unknown]
  - Memory impairment [Unknown]
  - Vision blurred [Unknown]
  - Aphasia [Unknown]

NARRATIVE: CASE EVENT DATE: 2016
